FAERS Safety Report 11313279 (Version 1)
Quarter: 2015Q3

REPORT INFORMATION
  Report Type: Spontaneous
  Country: US (occurrence: None)
  Receive Date: 20150724
  Receipt Date: 20150724
  Transmission Date: 20151125
  Serious: Yes (Life-Threatening, Other)
  Sender: FDA-Public Use
  Company Number: None

PATIENT
  Age: 31 Year
  Sex: Male
  Weight: 149.69 kg

DRUGS (4)
  1. ABILIFY [Suspect]
     Active Substance: ARIPIPRAZOLE
     Indication: MANIA
     Dosage: 1/2 DF
     Route: 048
     Dates: start: 20140506, end: 20150723
  2. SEROQUEL [Concomitant]
     Active Substance: QUETIAPINE FUMARATE
  3. ABILIFY [Suspect]
     Active Substance: ARIPIPRAZOLE
     Indication: BIPOLAR DISORDER
     Dosage: 1/2 DF
     Route: 048
     Dates: start: 20140506, end: 20150723
  4. XANAX [Concomitant]
     Active Substance: ALPRAZOLAM

REACTIONS (5)
  - Product substitution issue [None]
  - Legal problem [None]
  - Insomnia [None]
  - Agitation [None]
  - Mania [None]

NARRATIVE: CASE EVENT DATE: 20100820
